FAERS Safety Report 6234688-X (Version None)
Quarter: 2009Q2

REPORT INFORMATION
  Report Type: 
  Country: None (occurrence: None)
  Receive Date: 20090616
  Receipt Date: 20090616
  Transmission Date: 20091009
  Serious: Yes (Hospitalization, Other)
  Sender: FDA-Public Use
  Company Number: None

PATIENT
  Age: 60 Year
  Sex: Male
  Weight: 82.5547 kg

DRUGS (1)
  1. DIGOXIN [Suspect]
     Dosage: 1 DAILY

REACTIONS (3)
  - DEHYDRATION [None]
  - MALAISE [None]
  - VOMITING [None]
